FAERS Safety Report 24371747 (Version 1)
Quarter: 2024Q3

REPORT INFORMATION
  Report Type: Spontaneous
  Country: CN (occurrence: CN)
  Receive Date: 20240927
  Receipt Date: 20240927
  Transmission Date: 20241017
  Serious: Yes (Hospitalization)
  Sender: BAYER
  Company Number: CN-BAYER-2024A137160

PATIENT
  Age: 86 Year
  Sex: Male
  Weight: 52 kg

DRUGS (5)
  1. KERENDIA [Suspect]
     Active Substance: FINERENONE
     Indication: Type 2 diabetes mellitus
     Dosage: 10 MG, QD
     Route: 048
     Dates: start: 20240310, end: 20240829
  2. KERENDIA [Suspect]
     Active Substance: FINERENONE
     Indication: Chronic kidney disease
  3. ILAPRAZOLE [Concomitant]
     Active Substance: ILAPRAZOLE
     Dosage: UNK
     Dates: start: 2024, end: 20240817
  4. Shu xue tong [Concomitant]
     Dosage: UNK
     Dates: start: 2024, end: 20240817
  5. ACARBOSE [Concomitant]
     Active Substance: ACARBOSE
     Dosage: UNK
     Dates: start: 2024, end: 20240819

REACTIONS (1)
  - Platelet count decreased [Recovering/Resolving]

NARRATIVE: CASE EVENT DATE: 20240817
